FAERS Safety Report 9444121 (Version 1)
Quarter: 2013Q3

REPORT INFORMATION
  Report Type: Spontaneous
  Country: US (occurrence: None)
  Receive Date: 20130806
  Receipt Date: 20130806
  Transmission Date: 20140515
  Serious: No
  Sender: FDA-Public Use
  Company Number: None

PATIENT
  Sex: Male

DRUGS (7)
  1. TRAZODONE HCL [Suspect]
     Indication: OSTEOPOROSIS
     Route: 048
     Dates: end: 20130724
  2. ZOLPIDEM TARTRATE [Concomitant]
  3. OMEPRAZOLE [Concomitant]
  4. CITALOPRAM [Concomitant]
  5. TRIAMTERENE [Concomitant]
  6. OMEPRAZOLE [Concomitant]
  7. GARLIC CAPSULE [Concomitant]

REACTIONS (5)
  - Depression [None]
  - Confusional state [None]
  - Somnolence [None]
  - Somnolence [None]
  - Irritability [None]
